FAERS Safety Report 22228414 (Version 1)
Quarter: 2023Q2

REPORT INFORMATION
  Report Type: Spontaneous
  Country: US (occurrence: US)
  Receive Date: 20230419
  Receipt Date: 20230419
  Transmission Date: 20230722
  Serious: No
  Sender: FDA-Public Use
  Company Number: US-PFIZER INC-202300158371

PATIENT
  Age: 70 Year
  Sex: Female

DRUGS (1)
  1. TORISEL [Suspect]
     Active Substance: TEMSIROLIMUS
     Dosage: UNK

REACTIONS (2)
  - Nail disorder [Not Recovered/Not Resolved]
  - Onychoclasis [Not Recovered/Not Resolved]
